FAERS Safety Report 11256929 (Version 1)
Quarter: 2015Q3

REPORT INFORMATION
  Report Type: Spontaneous
  Country: US (occurrence: US)
  Receive Date: 20150709
  Receipt Date: 20150709
  Transmission Date: 20151125
  Serious: No
  Sender: FDA-Public Use
  Company Number: US-PURDUE-USA-2015-0120665

PATIENT
  Age: 30 Year
  Sex: Female

DRUGS (5)
  1. BUTRANS [Suspect]
     Active Substance: BUPRENORPHINE
     Dosage: 5 MCG/HR, WEEKLY
     Route: 062
     Dates: start: 201405
  2. BUTRANS [Suspect]
     Active Substance: BUPRENORPHINE
     Indication: COMPLEX REGIONAL PAIN SYNDROME
     Dosage: 15 MCG/HR, WEEKLY
     Route: 062
  3. BUTRANS [Suspect]
     Active Substance: BUPRENORPHINE
     Indication: PAIN
     Dosage: 20 MCG/HR, WEEKLY
     Route: 062
     Dates: start: 201406
  4. BUTRANS [Suspect]
     Active Substance: BUPRENORPHINE
     Dosage: 10 MCG/HR, WEEKLY
     Route: 062
  5. BUTRANS [Suspect]
     Active Substance: BUPRENORPHINE
     Dosage: 5 MCG/HR, UNK
     Route: 062

REACTIONS (15)
  - Application site burn [Not Recovered/Not Resolved]
  - Application site pustules [Not Recovered/Not Resolved]
  - Drug ineffective [Recovered/Resolved]
  - Abdominal discomfort [Unknown]
  - Fatigue [Unknown]
  - Application site scar [Not Recovered/Not Resolved]
  - Feeling abnormal [Unknown]
  - Application site bruise [Not Recovered/Not Resolved]
  - Application site rash [Not Recovered/Not Resolved]
  - Palpitations [Unknown]
  - Restlessness [Unknown]
  - Influenza like illness [Unknown]
  - Application site pruritus [Not Recovered/Not Resolved]
  - Pain [Unknown]
  - Migraine [Unknown]

NARRATIVE: CASE EVENT DATE: 201410
